FAERS Safety Report 5315473-X (Version None)
Quarter: 2007Q2

REPORT INFORMATION
  Report Type: 
  Country: None (occurrence: None)
  Receive Date: 20070503
  Receipt Date: 20070424
  Transmission Date: 20071010
  Serious: Yes (Other)
  Sender: FDA-Public Use
  Company Number: PHEH2007US04541

PATIENT
  Age: 36 Year
  Sex: Female

DRUGS (3)
  1. ZELNORM [Suspect]
     Route: 048
  2. HISTAVENT VA [Concomitant]
     Indication: HYPERSENSITIVITY
  3. LUBIPROSTONE [Concomitant]
     Indication: CONSTIPATION
     Dosage: 24 MG, BID
     Dates: start: 20070415, end: 20070417

REACTIONS (2)
  - RECTAL HAEMORRHAGE [None]
  - THROMBOSIS [None]
